FAERS Safety Report 24727745 (Version 1)
Quarter: 2024Q4

REPORT INFORMATION
  Report Type: Spontaneous
  Country: US (occurrence: US)
  Receive Date: 20241212
  Receipt Date: 20241212
  Transmission Date: 20250114
  Serious: Yes (Other)
  Sender: ELI LILLY AND COMPANY
  Company Number: US-ELI_LILLY_AND_COMPANY-US202412001345

PATIENT
  Age: 69 Year
  Sex: Male

DRUGS (3)
  1. TALTZ [Interacting]
     Active Substance: IXEKIZUMAB
     Indication: Psoriatic arthropathy
     Dosage: UNK UNK, UNKNOWN
     Route: 065
     Dates: start: 202311
  2. TALTZ [Interacting]
     Active Substance: IXEKIZUMAB
     Dosage: UNK UNK, UNKNOWN
     Route: 065
     Dates: start: 20241201
  3. MESALAMINE [Interacting]
     Active Substance: MESALAMINE
     Indication: Colitis microscopic
     Dosage: UNK UNK, UNKNOWN
     Route: 065

REACTIONS (5)
  - Colitis microscopic [Unknown]
  - Drug interaction [Unknown]
  - Injection site pruritus [Unknown]
  - Injection site swelling [Unknown]
  - Injection site haemorrhage [Unknown]

NARRATIVE: CASE EVENT DATE: 20241118
